FAERS Safety Report 9871092 (Version 2)
Quarter: 2014Q1

REPORT INFORMATION
  Report Type: Spontaneous
  Country: BR (occurrence: BR)
  Receive Date: 20140205
  Receipt Date: 20140321
  Transmission Date: 20141002
  Serious: Yes (Hospitalization)
  Sender: FDA-Public Use
  Company Number: BR-SA-2014SA011148

PATIENT
  Sex: Female

DRUGS (2)
  1. LANTUS [Suspect]
     Indication: DIABETES MELLITUS
     Route: 058
     Dates: start: 2004
  2. DEVICE NOS [Concomitant]
     Indication: DEVICE THERAPY

REACTIONS (2)
  - Ketoacidosis [Recovered/Resolved]
  - Blood glucose increased [Recovered/Resolved]
